FAERS Safety Report 23365030 (Version 1)
Quarter: 2024Q1

REPORT INFORMATION
  Report Type: Spontaneous
  Country: US (occurrence: None)
  Receive Date: 20240104
  Receipt Date: 20240104
  Transmission Date: 20240410
  Serious: No
  Sender: FDA-Public Use
  Company Number: 2023A288741

PATIENT
  Sex: Male

DRUGS (1)
  1. SYMBICORT [Suspect]
     Active Substance: BUDESONIDE\FORMOTEROL FUMARATE DIHYDRATE
     Dosage: UNKNOWN DOSAGE AND FREQUENCY UNKNOWN
     Route: 055

REACTIONS (8)
  - Respiration abnormal [Unknown]
  - Hypersensitivity [Unknown]
  - Dyspnoea [Unknown]
  - Sinusitis [Unknown]
  - Dust allergy [Unknown]
  - Mycotic allergy [Unknown]
  - Seasonal allergy [Unknown]
  - Anxiety [Not Recovered/Not Resolved]
